FAERS Safety Report 6115019-2 (Version None)
Quarter: 2009Q1

REPORT INFORMATION
  Report Type: 
  Country: None (occurrence: None)
  Receive Date: 20090313
  Receipt Date: 20090309
  Transmission Date: 20090719
  Serious: Yes (Hospitalization, Disabling, Other)
  Sender: FDA-Public Use
  Company Number: A0772116A

PATIENT
  Age: 64 Year
  Sex: Female

DRUGS (2)
  1. VALTREX [Suspect]
     Route: 065
     Dates: start: 20080201
  2. PERCOCET [Concomitant]

REACTIONS (3)
  - ABDOMINAL PAIN [None]
  - COLITIS ISCHAEMIC [None]
  - MUSCLE SPASMS [None]
